FAERS Safety Report 20693546 (Version 1)
Quarter: 2022Q2

REPORT INFORMATION
  Report Type: Spontaneous
  Country: US (occurrence: None)
  Receive Date: 20220411
  Receipt Date: 20220411
  Transmission Date: 20220721
  Serious: No
  Sender: FDA-Public Use
  Company Number: 2022A134791

PATIENT
  Sex: Male
  Weight: 73 kg

DRUGS (1)
  1. DALIRESP [Suspect]
     Active Substance: ROFLUMILAST
     Indication: Chronic obstructive pulmonary disease
     Route: 048

REACTIONS (4)
  - Respiration abnormal [Unknown]
  - Hypopnoea [Unknown]
  - Product dose omission issue [Unknown]
  - Inability to afford medication [Unknown]
